FAERS Safety Report 8517971-4 (Version None)
Quarter: 2012Q3

REPORT INFORMATION
  Report Type: 
  Country: None (occurrence: None)
  Receive Date: 20120718
  Receipt Date: 20120710
  Transmission Date: 20120928
  Serious: Yes (Hospitalization, Other)
  Sender: FDA-Public Use
  Company Number: DE-ASTELLAS-2012US005317

PATIENT
  Sex: Male

DRUGS (7)
  1. IBUPROFEN [Concomitant]
     Indication: BONE PAIN
     Dosage: 800 MG, BID
     Route: 048
  2. TARCEVA [Suspect]
     Dosage: UNK
     Route: 048
  3. PANTOZAL [Concomitant]
     Indication: PROPHYLAXIS AGAINST GASTROINTESTINAL ULCER
     Dosage: 40 MG, UID/QD
     Route: 048
  4. TARCEVA [Suspect]
     Indication: NON-SMALL CELL LUNG CANCER
     Dosage: 150 MG, UID/QD
     Route: 048
     Dates: start: 20120413, end: 20120516
  5. RAMIPRIL [Concomitant]
     Indication: HYPERTENSION
     Dosage: 2.5 MG, TID
     Route: 048
  6. METOCLOPRAMIDE [Concomitant]
     Indication: NAUSEA
     Dosage: 20 DROPS, TID
     Route: 048
  7. AMITRIPTYLINE HCL [Concomitant]
     Indication: PRODUCT USED FOR UNKNOWN INDICATION
     Dosage: 10 MG, UID/QD
     Route: 048

REACTIONS (1)
  - PANCYTOPENIA [None]
